FAERS Safety Report 6576003-8 (Version None)
Quarter: 2010Q1

REPORT INFORMATION
  Report Type: 
  Country: None (occurrence: None)
  Receive Date: 20100209
  Receipt Date: 20100126
  Transmission Date: 20100710
  Serious: Yes (Hospitalization, Other)
  Sender: FDA-Public Use
  Company Number: PHHY2009BR49718

PATIENT
  Sex: Female

DRUGS (5)
  1. DIOCOMB SI [Suspect]
     Indication: HYPERTENSION
     Dosage: 160/20 MG, QD
     Route: 048
     Dates: start: 20070101
  2. CALDEA [Concomitant]
     Indication: OSTEOARTHRITIS
     Dosage: ONE TABLET DAILY
     Route: 048
     Dates: start: 20020101
  3. SIMVACOR [Concomitant]
     Indication: BLOOD CHOLESTEROL ABNORMAL
     Dosage: ONE TABLET (40 MG) DAILY
     Route: 048
     Dates: start: 20090701
  4. MELOXICAM/AMITRIPTYLINE [Concomitant]
     Indication: OSTEOARTHRITIS
     Dosage: 1 TABLET (7.5/25 MG) DAILY IN MORNING
     Route: 048
     Dates: start: 20020101
  5. AESCULUS HIPPOCASTANUM [Concomitant]
     Indication: CARDIOVASCULAR DISORDER
     Dosage: ONE TABLET (50 MG) DAILY
     Route: 048
     Dates: start: 20020101

REACTIONS (4)
  - CARDIAC DISORDER [None]
  - DYSPNOEA [None]
  - FATIGUE [None]
  - WHEEZING [None]
